FAERS Safety Report 11714373 (Version 5)
Quarter: 2016Q2

REPORT INFORMATION
  Report Type: Spontaneous
  Country: US (occurrence: US)
  Receive Date: 20151109
  Receipt Date: 20160622
  Transmission Date: 20160815
  Serious: Yes (Other)
  Sender: FDA-Public Use
  Company Number: US-PFIZER INC-2015351597

PATIENT
  Age: 79 Year
  Sex: Female
  Weight: 100 kg

DRUGS (45)
  1. FLONASE [Concomitant]
     Active Substance: FLUTICASONE PROPIONATE
     Dosage: 50 UG, DAILY (INHALE 2 PUFFS)
     Route: 045
  2. ALBUTEROL. [Concomitant]
     Active Substance: ALBUTEROL
     Indication: ASTHMA
  3. OMEPRAZOLE. [Concomitant]
     Active Substance: OMEPRAZOLE
     Indication: GASTROOESOPHAGEAL REFLUX DISEASE
     Dosage: 20 MG, 1X/DAY (ONCE DAILY BEFORE A MEAL)
     Route: 048
  4. MELOXICAM. [Concomitant]
     Active Substance: MELOXICAM
     Indication: ARTHRALGIA
     Dosage: 7.5 MG, 2X/DAY
     Route: 048
  5. VITAMIN C [Concomitant]
     Active Substance: ASCORBIC ACID
     Dosage: 1000 MG, 1X/DAY
     Route: 048
  6. FISH OIL [Concomitant]
     Active Substance: FISH OIL
     Dosage: 600 MG, 1X/DAY
     Route: 048
  7. INSULIN [Concomitant]
     Active Substance: INSULIN NOS
     Dosage: 1 ML, USE AS DIRECTED
     Dates: start: 20140918
  8. HUMALOG [Concomitant]
     Active Substance: INSULIN LISPRO
     Dosage: 18UNITS BEFORE EACH MEAL (AS DIRECTED)
     Dates: start: 20141028
  9. ZITHROMAX [Concomitant]
     Active Substance: AZITHROMYCIN DIHYDRATE
     Dosage: 1000 MG, 1X/DAY (TAKE 2 TABLETS (500MG) BY ORAL ROUTE ONCE DAILY FOR 1 DAY)
     Route: 048
     Dates: start: 20160229, end: 20160229
  10. ZITHROMAX [Concomitant]
     Active Substance: AZITHROMYCIN DIHYDRATE
     Dosage: 250 MG, 1X/DAY (FOR 4 DAYS)
     Route: 048
  11. ALBUTEROL. [Concomitant]
     Active Substance: ALBUTEROL
     Indication: PNEUMONIA
  12. PROBIOTIC [Concomitant]
     Active Substance: PROBIOTICS NOS
     Dosage: 1.5 BILLION CELL CAPSULE DAILY
     Route: 048
  13. DIFLUCAN [Concomitant]
     Active Substance: FLUCONAZOLE
     Dosage: 200 MG, 1X/DAY (TAKE 1 TABLET (200MG) BY ORAL ROUTE ONCE DAILY X 3 DAYS)
     Route: 048
     Dates: start: 20160229
  14. VITAMIN D3 [Concomitant]
     Active Substance: CHOLECALCIFEROL
     Dosage: 1000 IU, 1X/DAY
     Route: 048
  15. LANTUS [Concomitant]
     Active Substance: INSULIN GLARGINE
     Dosage: 20UNITS AT BEDTIME
  16. LANTUS [Concomitant]
     Active Substance: INSULIN GLARGINE
     Dosage: 50 UNITS AT BEDTIME (100 UNIT/ML )
     Route: 058
  17. MUCINEX [Concomitant]
     Active Substance: GUAIFENESIN
     Dosage: 600 MG, 2X/DAY (ORAL TABLET EXTENDED RELEASE 12 HR)
  18. MULTIVITAMIN /00097801/ [Concomitant]
     Active Substance: VITAMINS
  19. LYRICA [Suspect]
     Active Substance: PREGABALIN
     Indication: NEURALGIA
  20. FLONASE [Concomitant]
     Active Substance: FLUTICASONE PROPIONATE
     Indication: ASTHMA
     Dosage: UNK UNK, 1X/DAY (FOR 3 MONTHS)
     Route: 045
  21. ALBUTEROL. [Concomitant]
     Active Substance: ALBUTEROL
     Indication: COUGH
     Dosage: 2 DF, UNK
  22. INSULIN [Concomitant]
     Active Substance: INSULIN NOS
     Dosage: 1/2 ML, BEFORE MEALS
     Dates: start: 20151026
  23. NOVOLOG [Concomitant]
     Active Substance: INSULIN ASPART
     Dosage: 12 UNITS BEFORE EACH MEAL
  24. BENAZEPRIL [Concomitant]
     Active Substance: BENAZEPRIL HYDROCHLORIDE
     Indication: BLOOD PRESSURE ABNORMAL
     Dosage: 20 MG, 1X/DAY (ONE TABLET)
     Route: 048
  25. NOVOLOG [Concomitant]
     Active Substance: INSULIN ASPART
     Dosage: 18 UNITS (INJECT BY SUBCUTANEOUS ROUTE AS PER 18UNITS PER MEAL)
     Route: 058
     Dates: start: 20160204
  26. PIOGLITAZONE. [Concomitant]
     Active Substance: PIOGLITAZONE
     Indication: DIABETES MELLITUS
     Dosage: UNK
     Route: 048
  27. ACTOS [Concomitant]
     Active Substance: PIOGLITAZONE HYDROCHLORIDE
     Dosage: 20 MG, DAILY
     Route: 048
  28. ACTOS [Concomitant]
     Active Substance: PIOGLITAZONE HYDROCHLORIDE
     Dosage: 30 MG, DAILY
     Route: 048
     Dates: start: 20160505
  29. MELOXICAM. [Concomitant]
     Active Substance: MELOXICAM
     Indication: BACK PAIN
  30. CELEBREX [Concomitant]
     Active Substance: CELECOXIB
     Dosage: UNK
  31. INSULIN [Concomitant]
     Active Substance: INSULIN NOS
     Dosage: 50 IU, 1X/DAY
  32. MELATONIN [Concomitant]
     Active Substance: MELATONIN
     Dosage: UNK
     Route: 048
  33. LYRICA [Suspect]
     Active Substance: PREGABALIN
     Indication: HERPES ZOSTER
     Dosage: 50 MG, 3X/DAY
     Route: 048
  34. CLONIDINE. [Concomitant]
     Active Substance: CLONIDINE
     Indication: BLOOD PRESSURE ABNORMAL
     Dosage: 0.1 MG, 2X/DAY
     Route: 048
  35. CLONIDINE. [Concomitant]
     Active Substance: CLONIDINE
     Dosage: 0.1 MG, 1X/DAY
     Route: 048
  36. BENEFIBER [Concomitant]
     Active Substance: STARCH, WHEAT
     Indication: ABDOMINAL DISCOMFORT
     Dosage: 2 DF, DAILY (2 SPOONFULS EVERY DAY IN COFFEE)
  37. CHROMIUM/CINNAMON [Concomitant]
     Dosage: 1000 MG, 1X/DAY
  38. NOVOLOG [Concomitant]
     Active Substance: INSULIN ASPART
     Dosage: 15UNITS BEFORE EACH MEAL
  39. CITALOPRAM [Concomitant]
     Active Substance: CITALOPRAM HYDROBROMIDE
     Dosage: 20 MG, 1X/DAY (TAKE 1 TABLET (20MG) BY ORAL ROUTE ONCE DAILY IN THE EVENING FOR 90 DAYS)
     Route: 048
     Dates: start: 20160204
  40. ALBUTEROL. [Concomitant]
     Active Substance: ALBUTEROL
     Indication: BRONCHITIS
     Dosage: 2.5 MG, 4X/DAY (INHALE 3 MILLILITRES (2.5 MG)BY NEBULIZATION ROUTE EVERY 6 HOURS)
  41. NOVOLOG [Concomitant]
     Active Substance: INSULIN ASPART
     Dosage: 10UNITS BEFORE EACH MEAL
  42. PROAIR HFA [Concomitant]
     Active Substance: ALBUTEROL SULFATE
     Dosage: 90 UG, AS NEEDED (: INHALE 1-2 PUFFS BY INHALATION ROUTE EVERY 6 HOURS)
     Route: 055
     Dates: start: 20160204
  43. CINNAMON. [Concomitant]
     Active Substance: CINNAMON
     Dosage: 500 MG, UNK
  44. CLONIDINE HCL [Concomitant]
     Active Substance: CLONIDINE HYDROCHLORIDE
     Dosage: 0.1 MG, 2X/DAY
     Dates: start: 20160204
  45. LANSOPRAZOLE. [Concomitant]
     Active Substance: LANSOPRAZOLE
     Dosage: 30 MG, 1X/DAY (BEFORE A MEAL)
     Route: 048
     Dates: start: 20160204

REACTIONS (10)
  - Joint swelling [Unknown]
  - Diabetes mellitus [Unknown]
  - Diabetic neuropathy [Unknown]
  - Pain in extremity [Recovered/Resolved]
  - Insomnia [Unknown]
  - Gait disturbance [Unknown]
  - Somnolence [Recovered/Resolved]
  - Condition aggravated [Unknown]
  - Hypoaesthesia [Unknown]
  - Weight increased [Unknown]
